FAERS Safety Report 5919770-6 (Version None)
Quarter: 2008Q4

REPORT INFORMATION
  Report Type: 
  Country: None (occurrence: None)
  Receive Date: 20081010
  Receipt Date: 20081001
  Transmission Date: 20090506
  Serious: Yes (Other)
  Sender: FDA-Public Use
  Company Number: STI-2008-02429

PATIENT
  Age: 16 Year
  Sex: Female

DRUGS (1)
  1. CLINDOXYL [Suspect]
     Indication: ACNE
     Dosage: (AT NIGHT), ONLY ON  ACNE SITE; A FEW DAYS AFTER INIT. CONTACT
     Dates: start: 20080716

REACTIONS (3)
  - ERYTHEMA [None]
  - EYE SWELLING [None]
  - SWELLING FACE [None]
